FAERS Safety Report 6377961-7 (Version None)
Quarter: 2009Q3

REPORT INFORMATION
  Report Type: 
  Country: None (occurrence: None)
  Receive Date: 20090925
  Receipt Date: 20090917
  Transmission Date: 20100115
  Serious: Yes (Other)
  Sender: FDA-Public Use
  Company Number: PHEH2009US09523

PATIENT
  Sex: Female
  Weight: 75.283 kg

DRUGS (8)
  1. TRILEPTAL [Suspect]
     Dosage: 150 MG, BID
     Route: 048
     Dates: start: 20090706, end: 20090810
  2. CLONAZEPAM [Concomitant]
     Dosage: 0.5 MG
  3. BOTOX [Concomitant]
  4. CALCIUM W/VITAMINS NOS [Concomitant]
     Dosage: 1400 MG
  5. FOLIC ACID [Concomitant]
     Dosage: UNK
  6. ASCORBIC ACID [Concomitant]
     Dosage: 1000MG
  7. ASPIRIN [Concomitant]
     Dosage: UNK
  8. LOVAZA [Concomitant]
     Dosage: 1000 MG

REACTIONS (7)
  - DIARRHOEA HAEMORRHAGIC [None]
  - FAECES DISCOLOURED [None]
  - INTESTINAL FUNCTIONAL DISORDER [None]
  - NAUSEA [None]
  - PRURITUS [None]
  - RECTAL HAEMORRHAGE [None]
  - VOMITING [None]
